FAERS Safety Report 17137596 (Version 1)
Quarter: 2019Q4

REPORT INFORMATION
  Report Type: Spontaneous
  Country: FR (occurrence: FR)
  Receive Date: 20191210
  Receipt Date: 20191210
  Transmission Date: 20200122
  Serious: Yes (Hospitalization, Other)
  Sender: FDA-Public Use
  Company Number: FR-AUROBINDO-AUR-APL-2019-094135

PATIENT
  Age: 68 Year
  Sex: Male

DRUGS (2)
  1. MEROPENEM ARROW [Suspect]
     Active Substance: MEROPENEM
     Indication: SEPTIC SHOCK
     Dosage: 3 GRAM, ONCE A DAY
     Route: 041
     Dates: start: 20190720, end: 20190805
  2. VANCOMYCINE MYLAN [Suspect]
     Active Substance: VANCOMYCIN
     Indication: SEPTIC SHOCK
     Dosage: 2.5 GRAM, ONCE A DAY
     Route: 041
     Dates: start: 20190805, end: 20190830

REACTIONS (1)
  - Pancytopenia [Recovered/Resolved]

NARRATIVE: CASE EVENT DATE: 20190804
